FAERS Safety Report 15546687 (Version 1)
Quarter: 2018Q4

REPORT INFORMATION
  Report Type: Spontaneous
  Country: FR (occurrence: FR)
  Receive Date: 20181024
  Receipt Date: 20181024
  Transmission Date: 20190205
  Serious: Yes (Hospitalization)
  Sender: FDA-Public Use
  Company Number: FR-PFIZER INC-2018425512

PATIENT
  Age: 39 Year
  Sex: Female

DRUGS (2)
  1. SOLU-MEDROL [Suspect]
     Active Substance: METHYLPREDNISOLONE SODIUM SUCCINATE
     Indication: MULTIPLE SCLEROSIS
     Dosage: 1 G 1X/DAY 21JUL2017; 22-23JUL2017
     Route: 042
     Dates: start: 20170721, end: 20170723
  2. TYSABRI [Suspect]
     Active Substance: NATALIZUMAB
     Indication: MULTIPLE SCLEROSIS
     Dosage: 300 MG MONTHLY
     Route: 042
     Dates: start: 20120801, end: 20170120

REACTIONS (1)
  - Threatened labour [Recovered/Resolved]

NARRATIVE: CASE EVENT DATE: 20170725
